FAERS Safety Report 8127155-X (Version None)
Quarter: 2012Q1

REPORT INFORMATION
  Report Type: 
  Country: None (occurrence: None)
  Receive Date: 20120210
  Receipt Date: 20120206
  Transmission Date: 20120608
  Serious: Yes (Hospitalization, Other)
  Sender: FDA-Public Use
  Company Number: BR-PFIZER INC-2012032593

PATIENT
  Age: 71 Year
  Sex: Female

DRUGS (1)
  1. TOLTERODINE TARTRATE [Suspect]
     Dosage: UNK
     Route: 048

REACTIONS (8)
  - VOMITING [None]
  - PAIN [None]
  - SPINAL DISORDER [None]
  - DYSSTASIA [None]
  - INTERVERTEBRAL DISC PROTRUSION [None]
  - FEELING ABNORMAL [None]
  - DIZZINESS [None]
  - WALKING DISABILITY [None]
